FAERS Safety Report 5902028-9 (Version None)
Quarter: 2008Q3

REPORT INFORMATION
  Report Type: 
  Country: None (occurrence: None)
  Receive Date: 20080909
  Receipt Date: 20080227
  Transmission Date: 20090109
  Serious: Yes (Other)
  Sender: FDA-Public Use
  Company Number: US-WYE-H02894408

PATIENT
  Age: 11 Year
  Sex: Male
  Weight: 45.4 kg

DRUGS (1)
  1. ADVIL [Suspect]
     Indication: HEADACHE
     Dosage: 1 LIQUI-GEL TWICE, ORAL
     Route: 048
     Dates: start: 20080201

REACTIONS (1)
  - EYE SWELLING [None]
